FAERS Safety Report 6421646-5 (Version None)
Quarter: 2009Q4

REPORT INFORMATION
  Report Type: 
  Country: None (occurrence: None)
  Receive Date: 20091030
  Receipt Date: 20091027
  Transmission Date: 20100525
  Serious: Yes (Hospitalization)
  Sender: FDA-Public Use
  Company Number: US-GILEAD-2009-0024867

PATIENT
  Sex: Male
  Weight: 97.61 kg

DRUGS (9)
  1. LETAIRIS [Suspect]
     Indication: PULMONARY ARTERIAL HYPERTENSION
     Dates: start: 20081112
  2. WARFARIN SODIUM [Concomitant]
  3. METOPROLOL [Concomitant]
  4. FUROSEMIDE [Concomitant]
  5. OXYGEN [Concomitant]
  6. NYSTATIN [Concomitant]
  7. METHIMAZOLE [Concomitant]
  8. LEVAQUIN [Concomitant]
  9. MULTI-VITAMINS [Concomitant]

REACTIONS (2)
  - CARDIAC DISORDER [None]
  - DEVICE RELATED SEPSIS [None]
